FAERS Safety Report 13936924 (Version 1)
Quarter: 2017Q3

REPORT INFORMATION
  Report Type: Spontaneous
  Country: SE (occurrence: SE)
  Receive Date: 20170905
  Receipt Date: 20170905
  Transmission Date: 20171127
  Serious: Yes (Hospitalization, Other)
  Sender: FDA-Public Use
  Company Number: SE-PFIZER INC-2017376882

PATIENT
  Age: 58 Year
  Sex: Male

DRUGS (1)
  1. XALKORI [Suspect]
     Active Substance: CRIZOTINIB
     Indication: LUNG ADENOCARCINOMA
     Dosage: 250 MG, 2X/DAY
     Dates: start: 20170703

REACTIONS (10)
  - Respiratory failure [Unknown]
  - Pneumonitis [Unknown]
  - Pneumocystis jirovecii pneumonia [Unknown]
  - Dyspnoea [Unknown]
  - Pneumonia [Unknown]
  - Oedema [Unknown]
  - Interstitial lung disease [Unknown]
  - Visual impairment [Unknown]
  - C-reactive protein increased [Recovered/Resolved]
  - Condition aggravated [Unknown]

NARRATIVE: CASE EVENT DATE: 20170710
